FAERS Safety Report 4534714-X (Version None)
Quarter: 2004Q4

REPORT INFORMATION
  Report Type: 
  Country: None (occurrence: None)
  Receive Date: 20041222
  Receipt Date: 20031125
  Transmission Date: 20050328
  Serious: No
  Sender: FDA-Public Use
  Company Number: US-BRISTOL-MYERS SQUIBB COMPANY-12444634

PATIENT
  Age: 74 Year
  Sex: Male
  Weight: 77 kg

DRUGS (12)
  1. PRAVACHOL [Suspect]
     Indication: BLOOD CHOLESTEROL INCREASED
     Route: 048
     Dates: start: 19991001
  2. ASPIRIN [Concomitant]
  3. ATENOLOL [Concomitant]
  4. CALCIUM [Concomitant]
  5. GLUCOSAMINE+CHONDROITIN+MSM [Concomitant]
  6. OMEGA-3 [Concomitant]
  7. MULTI-VITAMIN [Concomitant]
  8. COENZYME Q10 [Concomitant]
  9. LUTEIN [Concomitant]
  10. GINKGO [Concomitant]
  11. AMINO ACIDS [Concomitant]
  12. VITAMIN B COMPLEX CAP [Concomitant]

REACTIONS (1)
  - MUSCULAR WEAKNESS [None]
